FAERS Safety Report 15920139 (Version 4)
Quarter: 2019Q2

REPORT INFORMATION
  Report Type: Spontaneous
  Country: DE (occurrence: DE)
  Receive Date: 20190205
  Receipt Date: 20190626
  Transmission Date: 20190711
  Serious: Yes (Hospitalization, Other)
  Sender: FDA-Public Use
  Company Number: DE-GILEAD-2019-0388516

PATIENT
  Age: 33 Year
  Sex: Male
  Weight: 87 kg

DRUGS (14)
  1. ENOXAPARIN [Concomitant]
     Active Substance: ENOXAPARIN
     Dosage: 40 MG, QD
     Route: 058
  2. HYDROCORTISON [HYDROCORTISONE] [Concomitant]
     Route: 048
  3. PANTOPRAZOLE [Concomitant]
     Active Substance: PANTOPRAZOLE
     Dosage: 40 MG, QD
     Route: 048
  4. YESCARTA [Suspect]
     Active Substance: AXICABTAGENE CILOLEUCEL
     Indication: PRODUCT USED FOR UNKNOWN INDICATION
     Dosage: UNK
     Route: 042
     Dates: start: 20190121, end: 20190121
  5. FUROSEMIDE. [Concomitant]
     Active Substance: FUROSEMIDE
     Dosage: 40 MG, UNK
     Route: 058
  6. FLUCONAZOL [Concomitant]
     Active Substance: FLUCONAZOLE
     Dosage: 200 MG, BID
     Route: 048
  7. HYDROMORPHONE [Concomitant]
     Active Substance: HYDROMORPHONE
     Dosage: 4 MG, BID
     Route: 048
  8. PRAVASTATIN. [Concomitant]
     Active Substance: PRAVASTATIN
  9. ALLOPURINOL. [Concomitant]
     Active Substance: ALLOPURINOL
     Dosage: 300 MG, QD
     Route: 048
  10. URSOFALK [Concomitant]
     Active Substance: URSODIOL
     Dosage: 250 MG, TID
     Route: 048
  11. BARACLUDE [Concomitant]
     Active Substance: ENTECAVIR
     Dosage: 0.5 MG, QD
     Route: 048
  12. METHOTREXATE. [Concomitant]
     Active Substance: METHOTREXATE
     Indication: HIGH-GRADE B-CELL LYMPHOMA
     Dosage: UNK
     Dates: start: 20181219
  13. ACICLOVIR [Concomitant]
     Active Substance: ACYCLOVIR
     Dosage: 400 MG, BID
     Route: 048
  14. COTRIMOXAZOL [Concomitant]
     Active Substance: SULFAMETHOXAZOLE\TRIMETHOPRIM
     Dosage: 960 MG, UNK
     Route: 048

REACTIONS (8)
  - Lactic acidosis [Unknown]
  - Cytokine release syndrome [Unknown]
  - Abdominal pain [Unknown]
  - Disease progression [Unknown]
  - Aplasia [Unknown]
  - CAR T-cell-related encephalopathy syndrome [Unknown]
  - Pyrexia [Recovered/Resolved]
  - Hypoxia [Recovered/Resolved]

NARRATIVE: CASE EVENT DATE: 2019
